FAERS Safety Report 24319112 (Version 3)
Quarter: 2024Q4

REPORT INFORMATION
  Report Type: Spontaneous
  Country: US (occurrence: US)
  Receive Date: 20240913
  Receipt Date: 20241014
  Transmission Date: 20250115
  Serious: Yes (Other)
  Sender: CENTRAL ADMIXTURE PHARMACY SERVICES, INC.
  Company Number: US-Central Admixture Pharmacy Services, Inc.-2161576

PATIENT
  Age: 67 Year
  Sex: Male
  Weight: 72.7 kg

DRUGS (1)
  1. ANHYDROUS DEXTROSE\CITRIC ACID MONOHYDRATE\POTASSIUM CHLORIDE\SODIUM C [Suspect]
     Active Substance: ANHYDROUS DEXTROSE\CITRIC ACID MONOHYDRATE\POTASSIUM CHLORIDE\SODIUM CHLORIDE\SODIUM PHOSPHATE, MONO
     Indication: Cardiac operation
     Dates: start: 20240829

REACTIONS (1)
  - Drug ineffective [Recovered/Resolved]
